FAERS Safety Report 26174185 (Version 1)
Quarter: 2025Q4

REPORT INFORMATION
  Report Type: Report from Study
  Country: QA (occurrence: QA)
  Receive Date: 20251218
  Receipt Date: 20251218
  Transmission Date: 20260117
  Serious: Yes (Death, Other)
  Sender: ROCHE
  Company Number: QA-ROCHE-10000452053

PATIENT

DRUGS (6)
  1. ATEZOLIZUMAB [Suspect]
     Active Substance: ATEZOLIZUMAB
     Indication: Neoplasm
  2. PEMBROLIZUMAB [Suspect]
     Active Substance: PEMBROLIZUMAB
     Indication: Neoplasm
  3. NIVOLUMAB [Suspect]
     Active Substance: NIVOLUMAB
     Indication: Neoplasm
  4. AVELUMAB [Suspect]
     Active Substance: AVELUMAB
     Indication: Neoplasm
  5. DURVALUMAB [Suspect]
     Active Substance: DURVALUMAB
     Indication: Neoplasm
  6. IPILIMUMAB [Suspect]
     Active Substance: IPILIMUMAB
     Indication: Neoplasm

REACTIONS (49)
  - Pneumonitis [Fatal]
  - Hypothyroidism [Unknown]
  - Adrenal insufficiency [Unknown]
  - Hyperthyroidism [Unknown]
  - Hyponatraemia [Unknown]
  - Hyperkalaemia [Unknown]
  - Hypercalcaemia [Unknown]
  - Hypomagnesaemia [Unknown]
  - Hyperglycaemia [Unknown]
  - Diabetes mellitus [Unknown]
  - Diabetic ketoacidosis [Unknown]
  - Diarrhoea [Unknown]
  - Vomiting [Unknown]
  - Gastritis [Unknown]
  - Pancreatitis [Unknown]
  - Colitis [Unknown]
  - Myocarditis [Fatal]
  - Face oedema [Unknown]
  - Ejection fraction decreased [Unknown]
  - Pericardial effusion [Unknown]
  - Cardiac arrest [Unknown]
  - Eye swelling [Unknown]
  - Localised oedema [Unknown]
  - Hypertransaminasaemia [Unknown]
  - Hyperbilirubinaemia [Unknown]
  - Hyperammonaemia [Unknown]
  - Coagulopathy [Unknown]
  - Cholangitis [Unknown]
  - Thrombocytopenia [Unknown]
  - Anaemia [Unknown]
  - Pancytopenia [Unknown]
  - Bicytopenia [Unknown]
  - Gingival bleeding [Unknown]
  - Eosinophilia [Unknown]
  - Neutropenia [Unknown]
  - Fatigue [Unknown]
  - Neuropathy peripheral [Unknown]
  - Encephalopathy [Unknown]
  - Insomnia [Unknown]
  - Infusion related reaction [Unknown]
  - Hepatitis [Fatal]
  - Musculoskeletal disorder [Unknown]
  - Immune-mediated renal disorder [Fatal]
  - Infection [Unknown]
  - Autoimmune eye disorder [Unknown]
  - Autoimmune endocrine disorder [Fatal]
  - Immune-mediated neurological disorder [Fatal]
  - Blood disorder [Fatal]
  - Immune-mediated hepatic disorder [Fatal]
